FAERS Safety Report 16404014 (Version 2)
Quarter: 2019Q2

REPORT INFORMATION
  Report Type: Spontaneous
  Country: US (occurrence: US)
  Receive Date: 20190607
  Receipt Date: 20190614
  Transmission Date: 20190711
  Serious: No
  Sender: FDA-Public Use
  Company Number: US-JNJFOC-20190534699

PATIENT
  Age: 79 Year
  Sex: Female
  Weight: 59.88 kg

DRUGS (2)
  1. MENS ROGAINE EXTRA STRENGTH UNSCENTED [Suspect]
     Active Substance: MINOXIDIL
     Route: 061
  2. MENS ROGAINE EXTRA STRENGTH UNSCENTED [Suspect]
     Active Substance: MINOXIDIL
     Indication: SYSTEMIC LUPUS ERYTHEMATOSUS
     Dosage: BY SQUIRTING IT ON FINGERS AND RUBBING IT IN PROBABLY AN AMOUNT EQUAL TO A HALF CAPFUL 2 DAILY
     Route: 061
     Dates: start: 20190503

REACTIONS (7)
  - Product use issue [Unknown]
  - Poor quality product administered [Unknown]
  - Off label use [Unknown]
  - Product use in unapproved indication [Unknown]
  - Therapeutic response unexpected [Unknown]
  - Product formulation issue [Unknown]
  - Product administered at inappropriate site [Unknown]

NARRATIVE: CASE EVENT DATE: 201905
